FAERS Safety Report 7682074-8 (Version None)
Quarter: 2011Q3

REPORT INFORMATION
  Report Type: 
  Country: None (occurrence: None)
  Receive Date: 20110810
  Receipt Date: 20110801
  Transmission Date: 20111222
  Serious: Yes (Death, Hospitalization)
  Sender: FDA-Public Use
  Company Number: WAES 0511FRA00051

PATIENT
  Age: 43 Year
  Sex: Male

DRUGS (15)
  1. ACETAMINOPHEN- PROPOXYPHENE HCL TAB [Concomitant]
  2. DOMPERIDONE [Concomitant]
  3. ESOMEPRAZOLE MAGNESIUM [Concomitant]
  4. OCTREOTIDE ACETATE [Concomitant]
  5. FERROUS04 [Concomitant]
  6. CAP VORINOSTAT [Suspect]
     Indication: NEOPLASM PROGRESSION
     Dosage: 300 MG/BID PO;
     Route: 048
     Dates: start: 20051104, end: 20051107
  7. CAP VORINOSTAT [Suspect]
     Indication: PLEURAL MESOTHELIOMA
     Dosage: 300 MG/BID PO;
     Route: 048
     Dates: start: 20051104, end: 20051107
  8. CAP VORINOSTAT [Suspect]
     Indication: NEOPLASM PROGRESSION
     Dosage: 300 MG/BID PO;
     Route: 048
     Dates: start: 20051028, end: 20051031
  9. CAP VORINOSTAT [Suspect]
     Indication: PLEURAL MESOTHELIOMA
     Dosage: 300 MG/BID PO;
     Route: 048
     Dates: start: 20051028, end: 20051031
  10. CAP VORINOSTAT [Suspect]
     Indication: NEOPLASM PROGRESSION
     Dosage: 300 MG/BID PO;
     Route: 048
     Dates: start: 20051111, end: 20051114
  11. CAP VORINOSTAT [Suspect]
     Indication: PLEURAL MESOTHELIOMA
     Dosage: 300 MG/BID PO;
     Route: 048
     Dates: start: 20051111, end: 20051114
  12. METHYLPREDNISOLONE [Concomitant]
  13. PHLOROGLUCINOL (*) TRIMETHYLPHLOROGLUCIN [Concomitant]
  14. TRIMEBUTINE MALEATE [Concomitant]
  15. AMITRIPTYLINE HYDROCHLORIDE [Concomitant]

REACTIONS (12)
  - PYREXIA [None]
  - BLOOD GLUCOSE INCREASED [None]
  - TREMOR [None]
  - MESOTHELIOMA MALIGNANT [None]
  - ASCITES [None]
  - RENAL FAILURE [None]
  - SUPRAVENTRICULAR EXTRASYSTOLES [None]
  - ORAL CANDIDIASIS [None]
  - ABDOMINAL PAIN [None]
  - CONDITION AGGRAVATED [None]
  - CONSTIPATION [None]
  - LYMPHOPENIA [None]
